FAERS Safety Report 13549712 (Version 1)
Quarter: 2017Q2

REPORT INFORMATION
  Report Type: Spontaneous
  Country: US (occurrence: US)
  Receive Date: 20170516
  Receipt Date: 20170516
  Transmission Date: 20170830
  Serious: Yes (Other)
  Sender: FDA-Public Use
  Company Number: US-TEVA-750308ACC

PATIENT
  Age: 65 Year
  Sex: Male

DRUGS (1)
  1. ACETAMINOPHEN W/OXYCODONE [Suspect]
     Active Substance: ACETAMINOPHEN\OXYCODONE HYDROCHLORIDE
     Indication: BACK PAIN
     Dosage: DOSE STRENGTH: 5/325MG
     Dates: start: 201606

REACTIONS (3)
  - Abdominal pain upper [Recovered/Resolved]
  - Incorrect product storage [Unknown]
  - Product contamination microbial [Unknown]

NARRATIVE: CASE EVENT DATE: 2017
